FAERS Safety Report 22284795 (Version 1)
Quarter: 2023Q2

REPORT INFORMATION
  Report Type: Spontaneous
  Country: FR (occurrence: FR)
  Receive Date: 20230504
  Receipt Date: 20230504
  Transmission Date: 20230722
  Serious: Yes (Life-Threatening, Hospitalization)
  Sender: FDA-Public Use
  Company Number: None

PATIENT
  Age: 67 Year
  Sex: Male
  Weight: 95 kg

DRUGS (2)
  1. RITUXIMAB [Suspect]
     Active Substance: RITUXIMAB
     Indication: Extranodal marginal zone B-cell lymphoma (MALT type)
     Route: 065
     Dates: start: 20221109, end: 20230412
  2. IBRUTINIB [Suspect]
     Active Substance: IBRUTINIB
     Indication: Extranodal marginal zone B-cell lymphoma (MALT type)
     Route: 065
     Dates: start: 20221109, end: 20230414

REACTIONS (2)
  - Arrhythmic storm [Not Recovered/Not Resolved]
  - Shock haemorrhagic [Not Recovered/Not Resolved]

NARRATIVE: CASE EVENT DATE: 20230415
